FAERS Safety Report 22056766 (Version 4)
Quarter: 2023Q4

REPORT INFORMATION
  Report Type: Spontaneous
  Country: AT (occurrence: AT)
  Receive Date: 20230302
  Receipt Date: 20231005
  Transmission Date: 20240110
  Serious: Yes (Other)
  Sender: FDA-Public Use
  Company Number: AT-JNJFOC-20230301460

PATIENT
  Age: 49 Year
  Weight: 57 kg

DRUGS (2)
  1. STELARA [Suspect]
     Active Substance: USTEKINUMAB
     Indication: Crohn^s disease
     Route: 058
     Dates: start: 202105
  2. METHOTREXATE [Concomitant]
     Active Substance: METHOTREXATE
     Indication: Crohn^s disease
     Route: 065
     Dates: start: 202203

REACTIONS (7)
  - Abdominal wall abscess [Unknown]
  - Enterocutaneous fistula [Unknown]
  - Psoas abscess [Unknown]
  - Neoplasm [Unknown]
  - Drug ineffective [Unknown]
  - Colitis [Unknown]
  - Off label use [Unknown]
